FAERS Safety Report 6899249-8 (Version None)
Quarter: 2010Q3

REPORT INFORMATION
  Report Type: 
  Country: None (occurrence: None)
  Receive Date: 20100802
  Receipt Date: 20080223
  Transmission Date: 20110219
  Serious: No
  Sender: FDA-Public Use
  Company Number: US-PFIZER INC-2007065095

PATIENT
  Age: 52 Year
  Sex: Female
  Weight: 87.1 kg

DRUGS (1)
  1. LYRICA [Suspect]
     Indication: FIBROMYALGIA
     Dates: start: 20070717

REACTIONS (4)
  - COUGH [None]
  - DRUG INEFFECTIVE [None]
  - HYPERTENSION [None]
  - PALPITATIONS [None]
